FAERS Safety Report 5453104-9 (Version None)
Quarter: 2007Q3

REPORT INFORMATION
  Report Type: 
  Country: None (occurrence: None)
  Receive Date: 20070914
  Receipt Date: 20070904
  Transmission Date: 20080115
  Serious: Yes (Life-Threatening, Hospitalization, Other)
  Sender: FDA-Public Use
  Company Number: GB-PFIZER INC-2007070549

PATIENT
  Age: 38 Year
  Sex: Female
  Weight: 75 kg

DRUGS (3)
  1. VARENICLINE TABLETS [Suspect]
     Indication: SMOKING CESSATION THERAPY
     Route: 048
     Dates: start: 20070706, end: 20070722
  2. INSULIN DETEMIR [Concomitant]
     Route: 058
  3. NOVORAPID [Concomitant]
     Route: 058

REACTIONS (3)
  - CARDIAC ARREST [None]
  - CONVULSION [None]
  - VENTRICULAR FIBRILLATION [None]
